FAERS Safety Report 9547162 (Version 1)
Quarter: 2013Q2

REPORT INFORMATION
  Report Type: Spontaneous
  Country: US (occurrence: None)
  Receive Date: 20130606
  Receipt Date: 20130606
  Transmission Date: 20140414
  Serious: No
  Sender: FDA-Public Use
  Company Number: 163-POMAL-13032292

PATIENT
  Age: 75 Year
  Sex: Female

DRUGS (6)
  1. POMALYST (POMALIDOMIDE) (CAPSULES) [Suspect]
     Indication: PLASMA CELL MYELOMA
     Route: 048
     Dates: start: 20130228
  2. CALCIUM +D(OS-CAL) [Concomitant]
  3. DEXAMETHASONE)(DEXAMETHASONE) [Concomitant]
  4. METFORMIN HCL (METFORMIN HYDROCHLORIDE) [Concomitant]
  5. PAMIDRONATE DISODIUM(PAMIDRONATE DISODIUM) [Concomitant]
  6. VELCADE(BORTEZOMIB) [Concomitant]

REACTIONS (1)
  - Full blood count decreased [None]
